FAERS Safety Report 6167703-2 (Version None)
Quarter: 2009Q2

REPORT INFORMATION
  Report Type: 
  Country: None (occurrence: None)
  Receive Date: 20090424
  Receipt Date: 20090417
  Transmission Date: 20091009
  Serious: Yes (Hospitalization)
  Sender: FDA-Public Use
  Company Number: JP-MERCK-0904USA01822

PATIENT
  Age: 75 Year
  Sex: Male

DRUGS (7)
  1. SINGULAIR [Suspect]
     Indication: EMPHYSEMA
     Route: 048
     Dates: start: 20090316, end: 20090324
  2. CLARITH [Suspect]
     Indication: DYSPNOEA
     Route: 048
     Dates: start: 20090316, end: 20090324
  3. CLEANAL [Suspect]
     Indication: DYSPNOEA
     Route: 048
     Dates: start: 20090316, end: 20090324
  4. SEREVENT [Suspect]
     Indication: DYSPNOEA
     Dates: start: 20090316, end: 20090324
  5. MUCODYNE [Suspect]
     Indication: DYSPNOEA
     Route: 048
     Dates: start: 20090316, end: 20090324
  6. MARZULENE-S [Suspect]
     Indication: DYSPNOEA
     Route: 048
     Dates: start: 20090316, end: 20090324
  7. HOKUNALIN [Suspect]
     Indication: DYSPNOEA
     Route: 061
     Dates: start: 20090316, end: 20090324

REACTIONS (1)
  - HEPATIC FUNCTION ABNORMAL [None]
